FAERS Safety Report 8022645-2 (Version None)
Quarter: 2012Q1

REPORT INFORMATION
  Report Type: 
  Country: None (occurrence: None)
  Receive Date: 20120104
  Receipt Date: 20120102
  Transmission Date: 20120608
  Serious: Yes (Hospitalization)
  Sender: FDA-Public Use
  Company Number: US-GLAXOSMITHKLINE-B0772732A

PATIENT
  Sex: Female

DRUGS (1)
  1. AVANDIA [Suspect]
     Indication: DIABETES MELLITUS
     Route: 048
     Dates: start: 20051201, end: 20070601

REACTIONS (3)
  - CORONARY ARTERY DISEASE [None]
  - CARDIAC DISORDER [None]
  - MYOCARDIAL INFARCTION [None]
